FAERS Safety Report 8839642 (Version 2)
Quarter: 2013Q1

REPORT INFORMATION
  Report Type: Spontaneous
  Country: DE (occurrence: None)
  Receive Date: 20121011
  Receipt Date: 20130313
  Transmission Date: 20140127
  Serious: Yes (Other)
  Sender: FDA-Public Use
  Company Number: 2012CP000130

PATIENT
  Sex: Female

DRUGS (1)
  1. PERFALGAN [Suspect]
     Route: 042

REACTIONS (3)
  - Pleurisy [None]
  - Maternal exposure during pregnancy [None]
  - Alanine aminotransferase increased [None]
